FAERS Safety Report 5004136-6 (Version None)
Quarter: 2006Q2

REPORT INFORMATION
  Report Type: 
  Country: None (occurrence: None)
  Receive Date: 20060517
  Receipt Date: 20060425
  Transmission Date: 20061013
  Serious: Yes (Other)
  Sender: FDA-Public Use
  Company Number: 2006AC00804

PATIENT
  Age: 24404 Day
  Sex: Male
  Weight: 69 kg

DRUGS (7)
  1. IRESSA [Suspect]
     Indication: NON-SMALL CELL LUNG CANCER
     Route: 048
     Dates: start: 20060316, end: 20060423
  2. MINOCYCLINE HCL [Concomitant]
     Indication: RASH
     Dates: start: 20060410, end: 20060420
  3. MINOCYCLINE HCL [Concomitant]
     Indication: ACNE
     Dates: start: 20060410, end: 20060420
  4. REDOMEX [Concomitant]
     Indication: ANTIDEPRESSANT THERAPY
     Dates: end: 20060419
  5. ACETAMINOPHEN [Concomitant]
     Indication: PAIN
  6. DIFFERINE CREME [Concomitant]
     Indication: ACNE
     Dates: start: 20060410, end: 20060419
  7. DIFFERINE CREME [Concomitant]
     Indication: RASH
     Dates: start: 20060410, end: 20060419

REACTIONS (2)
  - CHEMICAL CYSTITIS [None]
  - URINE CYTOLOGY ABNORMAL [None]
